FAERS Safety Report 5416690-0 (Version None)
Quarter: 2007Q3

REPORT INFORMATION
  Report Type: 
  Country: None (occurrence: None)
  Receive Date: 20070814
  Receipt Date: 20070730
  Transmission Date: 20080115
  Serious: Yes (Hospitalization)
  Sender: FDA-Public Use
  Company Number: 6036321

PATIENT
  Age: 78 Year
  Sex: Female

DRUGS (4)
  1. LODOZ [Suspect]
     Indication: DRUG USE FOR UNKNOWN INDICATION
     Dosage: 1 DOSAGE FORMS (1 DOSAGE FORMS, 1 D) ORAL
     Route: 048
  2. LOXEN (TABLET) (NICARDIPINE HYDROCHLORIDE) [Suspect]
     Indication: HYPERTENSION
     Dosage: 100 MG (50 MG, 2 IN 1 D) ORAL
     Route: 048
  3. ACTONEL [Concomitant]
  4. AMLODIPINE BESYLATE [Concomitant]

REACTIONS (4)
  - HYPOTENSION [None]
  - MALAISE [None]
  - ORTHOSTATIC HYPOTENSION [None]
  - UPPER LIMB FRACTURE [None]
